FAERS Safety Report 13928277 (Version 2)
Quarter: 2017Q3

REPORT INFORMATION
  Report Type: Spontaneous
  Country: CN (occurrence: CN)
  Receive Date: 20170901
  Receipt Date: 20170904
  Transmission Date: 20171127
  Serious: Yes (Death, Other)
  Sender: FDA-Public Use
  Company Number: PHHY2017CN128880

PATIENT
  Age: 29 Year
  Sex: Female

DRUGS (21)
  1. CYCLOPHOSPHAMIDE. [Suspect]
     Active Substance: CYCLOPHOSPHAMIDE
     Indication: ACUTE LEUKAEMIA
     Dosage: 55 MG/KG, QD
     Route: 041
  2. ATG [Suspect]
     Active Substance: LAPINE T-LYMPHOCYTE IMMUNE GLOBULIN
     Indication: IMMUNOSUPPRESSION
  3. CYTARABINE. [Suspect]
     Active Substance: CYTARABINE
     Indication: LYMPHOMA
  4. ATG [Suspect]
     Active Substance: LAPINE T-LYMPHOCYTE IMMUNE GLOBULIN
     Indication: ACUTE LYMPHOCYTIC LEUKAEMIA
     Dosage: 4 DAYS TO 1 DAY BEFORE TRANSPLANTATION
     Route: 065
  5. BUSULFAN. [Suspect]
     Active Substance: BUSULFAN
     Indication: MYELODYSPLASTIC SYNDROME
  6. CYCLOPHOSPHAMIDE. [Suspect]
     Active Substance: CYCLOPHOSPHAMIDE
     Indication: LYMPHOMA
  7. CYTARABINE. [Suspect]
     Active Substance: CYTARABINE
     Indication: CHRONIC MYELOID LEUKAEMIA
  8. CICLOSPORIN [Suspect]
     Active Substance: CYCLOSPORINE
     Indication: IMMUNOSUPPRESSION
     Dosage: ONE DAY BEFORE TRANSPLANTATION
     Route: 042
  9. BUSULFAN. [Suspect]
     Active Substance: BUSULFAN
     Indication: ACUTE LEUKAEMIA
     Dosage: 0.8 MG/KG, QW
     Route: 041
  10. CYCLOPHOSPHAMIDE. [Suspect]
     Active Substance: CYCLOPHOSPHAMIDE
     Indication: CHRONIC MYELOID LEUKAEMIA
  11. CICLOSPORIN [Suspect]
     Active Substance: CYCLOSPORINE
     Indication: ACUTE LYMPHOCYTIC LEUKAEMIA
     Dosage: TWO DAYS BEFORE TRANSPLANTATION
     Route: 042
  12. CYCLOPHOSPHAMIDE. [Suspect]
     Active Substance: CYCLOPHOSPHAMIDE
     Indication: MYELODYSPLASTIC SYNDROME
  13. CYTARABINE. [Suspect]
     Active Substance: CYTARABINE
     Indication: ACUTE LEUKAEMIA
     Dosage: 4 G/M2, UNK
     Route: 041
  14. MYCOPHENOLATE MOFETIL. [Suspect]
     Active Substance: MYCOPHENOLATE MOFETIL
     Indication: ACUTE LYMPHOCYTIC LEUKAEMIA
     Dosage: 0.5 G, QD
     Route: 048
  15. MYCOPHENOLATE MOFETIL. [Suspect]
     Active Substance: MYCOPHENOLATE MOFETIL
     Indication: IMMUNOSUPPRESSION
     Dosage: 1.0 G, QD
     Route: 048
  16. METHOTREXATE. [Suspect]
     Active Substance: METHOTREXATE
     Indication: ACUTE LYMPHOCYTIC LEUKAEMIA
     Dosage: 1 DAY AFTER TRANSPLANTATION
     Route: 065
  17. BUSULFAN. [Suspect]
     Active Substance: BUSULFAN
     Indication: CHRONIC MYELOID LEUKAEMIA
  18. BUSULFAN. [Suspect]
     Active Substance: BUSULFAN
     Indication: LYMPHOMA
  19. CYTARABINE. [Suspect]
     Active Substance: CYTARABINE
     Indication: MYELODYSPLASTIC SYNDROME
  20. CICLOSPORIN [Suspect]
     Active Substance: CYCLOSPORINE
     Dosage: 5 MG/KG, QD
     Route: 048
  21. METHOTREXATE. [Suspect]
     Active Substance: METHOTREXATE
     Indication: IMMUNOSUPPRESSION
     Dosage: 3,6,11 DAYS AFTER TRANSPLANTATION
     Route: 065

REACTIONS (9)
  - Graft versus host disease [Fatal]
  - Venoocclusive disease [Recovering/Resolving]
  - Weight increased [Recovering/Resolving]
  - Acute kidney injury [Unknown]
  - Ascites [Recovering/Resolving]
  - Cystitis haemorrhagic [Unknown]
  - Liver disorder [Unknown]
  - Infection [Unknown]
  - Hepatomegaly [Recovering/Resolving]
